FAERS Safety Report 6023298-5 (Version None)
Quarter: 2008Q4

REPORT INFORMATION
  Report Type: 
  Country: None (occurrence: None)
  Receive Date: 20081226
  Receipt Date: 20081226
  Transmission Date: 20090506
  Serious: Yes (Hospitalization)
  Sender: FDA-Public Use
  Company Number: None

PATIENT

DRUGS (6)
  1. CYCLOPHOSPHAMIDE [Suspect]
     Dosage: 1500 MG
  2. CYTARABINE [Suspect]
     Dosage: 920 MG
  3. MERCAPTOPURINE [Suspect]
     Dosage: 1400 MG
  4. METHOTREXATE [Suspect]
     Dosage: 30 MG
  5. PEG-L ASPARAGINASE (K-H) [Suspect]
     Dosage: 3700 IU
  6. VINCRISTINE SULFATE [Suspect]
     Dosage: 2 MG

REACTIONS (5)
  - DRUG ADMINISTRATION ERROR [None]
  - DRUG DOSE OMISSION [None]
  - FACIAL PALSY [None]
  - LEUKOENCEPHALOPATHY [None]
  - MUSCULAR WEAKNESS [None]
